FAERS Safety Report 7326734-7 (Version None)
Quarter: 2011Q1

REPORT INFORMATION
  Report Type: 
  Country: None (occurrence: None)
  Receive Date: 20110302
  Receipt Date: 20091012
  Transmission Date: 20110831
  Serious: No
  Sender: FDA-Public Use
  Company Number: US-PFIZER INC-2009270825

PATIENT
  Sex: Female
  Weight: 49.9 kg

DRUGS (5)
  1. PREDNISONE [Concomitant]
     Dosage: 15 MG, 1X/DAY
     Dates: start: 20090101
  2. VFEND [Suspect]
     Indication: ASPERGILLOMA
     Dosage: 200 MG, 2X/DAY
     Route: 048
     Dates: start: 20090911
  3. MICAFUNGIN [Concomitant]
     Indication: ASPERGILLOMA
     Dosage: 100 MG, 1X/DAY
     Route: 042
     Dates: start: 20090701, end: 20090909
  4. THEOPHYLLINE [Concomitant]
     Indication: ASTHMA
     Dosage: 200 MG, 3X/DAY
     Route: 048
  5. ADVAIR DISKUS 100/50 [Concomitant]
     Indication: ASTHMA
     Dosage: UNK
     Route: 055

REACTIONS (4)
  - PHOTOPHOBIA [None]
  - TINNITUS [None]
  - VISION BLURRED [None]
  - CHROMATOPSIA [None]
